FAERS Safety Report 25124551 (Version 2)
Quarter: 2025Q2

REPORT INFORMATION
  Report Type: Spontaneous
  Country: US (occurrence: US)
  Receive Date: 20250326
  Receipt Date: 20250425
  Transmission Date: 20250717
  Serious: No
  Sender: MYLAN
  Company Number: US-MYLANLABS-2025M1024885

PATIENT
  Age: 77 Year
  Sex: Female
  Weight: 84.82 kg

DRUGS (2)
  1. BREYNA [Suspect]
     Active Substance: BUDESONIDE\FORMOTEROL FUMARATE
     Indication: Chest discomfort
     Dosage: 80/4.5 MICROGRAM, QID (2 TIMES IN THE AM AND 2 TIMES IN THE PM)
     Dates: start: 20250213
  2. BREYNA [Suspect]
     Active Substance: BUDESONIDE\FORMOTEROL FUMARATE
     Indication: Asthma

REACTIONS (3)
  - Wrong technique in device usage process [Unknown]
  - Device delivery system issue [Unknown]
  - Intentional product misuse [Unknown]

NARRATIVE: CASE EVENT DATE: 20250213
